FAERS Safety Report 7099282-X (Version None)
Quarter: 2010Q4

REPORT INFORMATION
  Report Type: 
  Country: None (occurrence: None)
  Receive Date: 20101112
  Receipt Date: 20101029
  Transmission Date: 20110411
  Serious: Yes (Hospitalization, Other)
  Sender: FDA-Public Use
  Company Number: PHEH2007US12073

PATIENT
  Sex: Female

DRUGS (70)
  1. ZOMETA [Suspect]
     Indication: MULTIPLE MYELOMA
     Dosage: 4 MG, QMO
     Dates: start: 20050720, end: 20070101
  2. ZOMETA [Suspect]
     Indication: BONE LESION
     Dosage: EVERY 3-4 MONTHS
     Dates: end: 20080107
  3. AREDIA [Suspect]
     Dosage: 90 MG, QMO
     Route: 042
     Dates: start: 19970301
  4. VINCRISTINE + ADRIAMYCIN + DEXAMETHASONE [Concomitant]
     Dosage: UNK
     Dates: start: 19970301
  5. NEURONTIN [Concomitant]
     Dosage: 500MG , BEDTIME
  6. LORAZEPAM [Concomitant]
     Dosage: 0.05MG TWICE DAILY
  7. BENTYL [Concomitant]
     Dosage: 10MG TWICE DAILY
  8. PREVACID [Concomitant]
     Dosage: 25MG, TWICE DAILY
  9. AMBIEN [Concomitant]
     Dosage: 10 MG, BEDTIME
  10. OXYCODONE HCL [Concomitant]
     Indication: PAIN
  11. CHEMOTHERAPEUTICS NOS [Concomitant]
  12. RELAFEN [Concomitant]
     Dosage: UNK
  13. VIOXX [Concomitant]
     Dosage: 25 MG
     Dates: end: 20030101
  14. COUMADIN [Concomitant]
     Dosage: 4 MG / DAILY
  15. FLEXERIL [Concomitant]
     Dosage: UNK, TAKEN AS NEEDED
  16. CARBIDOPA [Concomitant]
     Indication: MUSCLE SPASMS
     Dosage: UNK
  17. VALIUM [Concomitant]
     Dosage: UNK
  18. SKELAXIN [Concomitant]
     Dosage: 400 MG, 2 TABLETS, 3 X DAY
  19. ATIVAN [Concomitant]
     Dosage: 0.5 , TWICE DAILY
  20. PREDNISONE [Concomitant]
     Dosage: UNK
  21. PAMELOR [Concomitant]
     Dosage: UNK
  22. ZELNORM                                 /CAN/ [Concomitant]
     Dosage: UNK
  23. MOBIC [Concomitant]
     Dosage: UNK
  24. LEXAPRO [Concomitant]
     Dosage: 10 MG
     Dates: start: 20031103
  25. CELEBREX [Concomitant]
     Dosage: 200 MG / DAILY
  26. AMBIEN [Concomitant]
     Dosage: 10 MG / QHS
  27. OXYCODONE HCL [Concomitant]
     Indication: PAIN
     Dosage: 5 MG / EVERY 6 HRS AS NEEDED
     Dates: start: 20081006
  28. CYMBALTA [Concomitant]
     Dosage: 30 MG / DAILY
  29. FAMVIR                                  /NET/ [Concomitant]
     Dosage: 500 MG / TID
     Dates: start: 20080715
  30. OXYCONTIN [Concomitant]
     Dosage: UNK
  31. EFFEXOR XR [Concomitant]
     Dosage: 37.5 MG
     Dates: start: 20071011
  32. PAXIL [Concomitant]
     Dosage: UNK
  33. L-DOPA [Concomitant]
     Indication: RESTLESS LEGS SYNDROME
     Dosage: UNK
  34. OMNICEF [Concomitant]
     Dosage: UNK
  35. ZITHROMAX [Concomitant]
     Dosage: UNK
  36. NASACORT [Concomitant]
     Dosage: UNK
  37. TESSALON [Concomitant]
     Dosage: UNK
  38. MEDROL [Concomitant]
     Dosage: UNK
  39. CLARITIN [Concomitant]
     Dosage: 10 MG / DAILY
  40. ZITHROMAX [Concomitant]
     Dosage: UNK
     Dates: end: 20060724
  41. LAMICTAL [Concomitant]
     Dosage: UNK
  42. DECADRON [Concomitant]
     Dosage: UNK
  43. PREDNISONE [Concomitant]
     Dosage: UNK
  44. MULTI-VITAMINS [Concomitant]
     Dosage: UNK
  45. OXYCODONE HCL [Concomitant]
     Dosage: 5MG / Q6PRN
  46. PERCOCET [Concomitant]
     Dosage: 5/325 MG
  47. UNASYN [Concomitant]
     Dosage: 3 G, UNK
  48. LANSOPRAZOLE [Concomitant]
     Dosage: 15 MG, UNK
  49. ZOLPIDEM TARTRATE [Concomitant]
     Dosage: 10 MG, UNK
  50. PRILOSEC [Concomitant]
     Dosage: 20 MG, BID X 7 DAYS, THEN QD
     Route: 048
  51. AUGMENTIN '125' [Concomitant]
     Indication: UPPER RESPIRATORY TRACT INFECTION
  52. DICLOXACILLIN [Concomitant]
     Dosage: 500 MG, QID FOR TWO WEEKS
     Dates: start: 19970101
  53. PENICILLIN [Concomitant]
     Dosage: UNK
     Dates: start: 20071201, end: 20080101
  54. CEPHALEXIN [Concomitant]
  55. METAMUCIL-2 [Concomitant]
  56. FLAGYL [Concomitant]
  57. ZYRTEC [Concomitant]
  58. LOTREL [Concomitant]
  59. CELEXA [Concomitant]
     Dosage: 10 MG, QD
     Route: 048
     Dates: start: 20091123
  60. XALATAN [Concomitant]
     Dosage: UNK
  61. ASPIRIN [Concomitant]
     Dosage: 81 MG, QD
     Route: 048
  62. NORVASC [Suspect]
  63. TYLENOL [Concomitant]
  64. MAALOX                                  /NET/ [Concomitant]
  65. FRAGMIN [Concomitant]
  66. XANAX [Concomitant]
  67. LOPRESSOR [Concomitant]
  68. COLACE [Concomitant]
  69. PROTONIX [Concomitant]
  70. NITROSTAT [Concomitant]
     Route: 060

REACTIONS (92)
  - ABDOMINAL DISCOMFORT [None]
  - ADENOMA BENIGN [None]
  - AMBLYOPIA [None]
  - ANAEMIA [None]
  - ANAL CANDIDIASIS [None]
  - ANGINA PECTORIS [None]
  - ANHEDONIA [None]
  - ANXIETY [None]
  - AORTIC VALVE SCLEROSIS [None]
  - ARTHRALGIA [None]
  - ARTHRITIS [None]
  - BONE PAIN [None]
  - BRAIN SCAN ABNORMAL [None]
  - BRONCHITIS [None]
  - CARDIAC MURMUR [None]
  - CATARACT [None]
  - CHILLS [None]
  - COMMINUTED FRACTURE [None]
  - COMPRESSION FRACTURE [None]
  - CONSTIPATION [None]
  - COSTOCHONDRITIS [None]
  - CRYING [None]
  - DEFORMITY [None]
  - DENTAL CARIES [None]
  - DEPRESSION [None]
  - DIARRHOEA [None]
  - DISCOMFORT [None]
  - DIZZINESS [None]
  - DRUG DEPENDENCE [None]
  - DYSARTHRIA [None]
  - DYSPHAGIA [None]
  - EAR INFECTION [None]
  - EMOTIONAL DISTRESS [None]
  - EXOSTOSIS [None]
  - FALL [None]
  - FATIGUE [None]
  - FEELING ABNORMAL [None]
  - GROIN PAIN [None]
  - HEADACHE [None]
  - HIGH FREQUENCY ABLATION [None]
  - HIP FRACTURE [None]
  - HUMERUS FRACTURE [None]
  - HYPERTENSION [None]
  - HYPOPHAGIA [None]
  - INJURY [None]
  - INSOMNIA [None]
  - INTERVERTEBRAL DISC PROTRUSION [None]
  - JOINT STIFFNESS [None]
  - LABYRINTHITIS [None]
  - LARYNGOSPASM [None]
  - LEFT ATRIAL DILATATION [None]
  - LEUKOPENIA [None]
  - MITRAL VALVE SCLEROSIS [None]
  - MONOCLONAL IMMUNOGLOBULIN PRESENT [None]
  - MOUTH ULCERATION [None]
  - MUSCLE INJURY [None]
  - MUSCLE SPASMS [None]
  - MUSCULOSKELETAL CHEST PAIN [None]
  - NAUSEA [None]
  - NECK PAIN [None]
  - NERVOUSNESS [None]
  - NEUROPATHY PERIPHERAL [None]
  - NON-CARDIAC CHEST PAIN [None]
  - ORAL FUNGAL INFECTION [None]
  - OSTEONECROSIS OF JAW [None]
  - OSTEOPENIA [None]
  - PAIN [None]
  - PAIN IN EXTREMITY [None]
  - RASH [None]
  - RECTAL HAEMORRHAGE [None]
  - REFLUX GASTRITIS [None]
  - REFLUX LARYNGITIS [None]
  - RESTLESS LEGS SYNDROME [None]
  - RIB FRACTURE [None]
  - SENSITIVITY OF TEETH [None]
  - SINUSITIS [None]
  - SPONDYLOLYSIS [None]
  - SUBCLAVIAN VEIN THROMBOSIS [None]
  - SWELLING [None]
  - SYNOVIAL CYST [None]
  - TENDON DISORDER [None]
  - TENDON INJURY [None]
  - TENDONITIS [None]
  - TOOTH REPAIR [None]
  - TRICUSPID VALVE INCOMPETENCE [None]
  - UPPER LIMB FRACTURE [None]
  - UPPER RESPIRATORY TRACT INFECTION [None]
  - VARICOSE VEIN [None]
  - VENOUS INSUFFICIENCY [None]
  - VERTIGO [None]
  - VIRAL INFECTION [None]
  - VOMITING [None]
